FAERS Safety Report 23584853 (Version 8)
Quarter: 2025Q3

REPORT INFORMATION
  Report Type: Report from Study
  Country: CA (occurrence: CA)
  Receive Date: 20240301
  Receipt Date: 20250916
  Transmission Date: 20251020
  Serious: Yes (Hospitalization, Other)
  Sender: TAKEDA
  Company Number: CA-TAKEDA-2024TUS002720

PATIENT
  Age: 86 Year
  Sex: Female

DRUGS (12)
  1. VEDOLIZUMAB [Suspect]
     Active Substance: VEDOLIZUMAB
     Indication: Crohn^s disease
  2. VEDOLIZUMAB [Suspect]
     Active Substance: VEDOLIZUMAB
  3. VEDOLIZUMAB [Suspect]
     Active Substance: VEDOLIZUMAB
  4. VEDOLIZUMAB [Suspect]
     Active Substance: VEDOLIZUMAB
  5. VEDOLIZUMAB [Suspect]
     Active Substance: VEDOLIZUMAB
  6. VEDOLIZUMAB [Suspect]
     Active Substance: VEDOLIZUMAB
  7. SYNTHROID [Concomitant]
     Active Substance: LEVOTHYROXINE SODIUM
  8. TELMISARTAN [Concomitant]
     Active Substance: TELMISARTAN
  9. PANTOPRAZOLE [Concomitant]
     Active Substance: PANTOPRAZOLE
  10. FERAMAX [Concomitant]
     Active Substance: IRON\POLYSACCHARIDES
  11. IRON [Concomitant]
     Active Substance: IRON
  12. METAMUCIL [Concomitant]
     Active Substance: PLANTAGO SEED

REACTIONS (31)
  - Diverticulitis [Recovering/Resolving]
  - Gastrointestinal inflammation [Unknown]
  - Uveitis [Unknown]
  - Skin cancer [Unknown]
  - Basal cell carcinoma [Unknown]
  - Pallor [Unknown]
  - Blood pressure abnormal [Unknown]
  - Pain [Unknown]
  - Vascular access site bruising [Unknown]
  - Diarrhoea [Unknown]
  - Faeces discoloured [Unknown]
  - Gastrointestinal sounds abnormal [Unknown]
  - Hiatus hernia [Unknown]
  - Anal incontinence [Unknown]
  - Anaemia [Unknown]
  - Malaise [Unknown]
  - Vascular access site pain [Unknown]
  - Frequent bowel movements [Unknown]
  - Defaecation urgency [Unknown]
  - Intestinal polyp [Unknown]
  - Feeling abnormal [Unknown]
  - Abdominal discomfort [Unknown]
  - Weight decreased [Unknown]
  - Swelling [Recovering/Resolving]
  - Localised oedema [Recovering/Resolving]
  - Abdominal pain [Unknown]
  - Blood pressure increased [Unknown]
  - Vision blurred [Not Recovered/Not Resolved]
  - Flatulence [Unknown]
  - Dyspepsia [Unknown]
  - Fatigue [Unknown]

NARRATIVE: CASE EVENT DATE: 20240423
